FAERS Safety Report 15426152 (Version 1)
Quarter: 2018Q3

REPORT INFORMATION
  Report Type: Spontaneous
  Country: US (occurrence: US)
  Receive Date: 20180925
  Receipt Date: 20180925
  Transmission Date: 20181010
  Serious: No
  Sender: FDA-Public Use
  Company Number: US-B.I. PHARMACEUTICALS,INC./RIDGEFIELD-2018-BI-047090

PATIENT
  Age: 82 Year
  Sex: Female

DRUGS (2)
  1. XANAX [Concomitant]
     Active Substance: ALPRAZOLAM
     Indication: ANXIETY
     Route: 065
  2. SPIRIVA RESPIMAT [Suspect]
     Active Substance: TIOTROPIUM BROMIDE
     Indication: CHRONIC OBSTRUCTIVE PULMONARY DISEASE
     Dosage: FORM: INHALATION SPRAY? ACTION(S) : DNC
     Route: 055
     Dates: start: 201808

REACTIONS (3)
  - Choking [Unknown]
  - Hypotension [Unknown]
  - Cough [Unknown]

NARRATIVE: CASE EVENT DATE: 201808
